FAERS Safety Report 9821014 (Version 1)
Quarter: 2014Q1

REPORT INFORMATION
  Report Type: Spontaneous
  Country: US (occurrence: US)
  Receive Date: 20140116
  Receipt Date: 20140116
  Transmission Date: 20141002
  Serious: Yes (Other)
  Sender: FDA-Public Use
  Company Number: US-MYLANLABS-2014S1000517

PATIENT
  Age: 57 Year
  Sex: Male

DRUGS (1)
  1. EPIPEN 2-PAK [Suspect]
     Indication: HYPERSENSITIVITY
     Route: 030

REACTIONS (4)
  - Drug effect decreased [Recovered/Resolved]
  - Hypersensitivity [Recovered/Resolved]
  - Device failure [Recovered/Resolved]
  - Circumstance or information capable of leading to medication error [Unknown]
